FAERS Safety Report 8144914 (Version 3)
Quarter: 2014Q2

REPORT INFORMATION
  Report Type: Report from Study
  Country: EG (occurrence: EG)
  Receive Date: 20110920
  Receipt Date: 20140629
  Transmission Date: 20141212
  Serious: Yes (Other)
  Sender: FDA-Public Use
  Company Number: PHHO2011EG15480

PATIENT
  Age: 56 Year
  Sex: Male
  Weight: 55 kg

DRUGS (3)
  1. EVEROLIMUS [Suspect]
     Indication: METASTATIC RENAL CELL CARCINOMA
     Dosage: 10 MG, PER DAY OML
     Route: 048
     Dates: start: 20110306, end: 20110802
  2. NEUROBION [Concomitant]
     Indication: PARAESTHESIA
     Dosage: 1000 MG, EVERY OTHER DAY
     Route: 030
     Dates: start: 20110404
  3. LYRICA [Concomitant]
     Indication: BONE PAIN
     Dosage: 150 MG, BID
     Route: 048
     Dates: start: 20110428

REACTIONS (2)
  - Aspartate aminotransferase increased [Unknown]
  - Concomitant disease progression [Unknown]
